FAERS Safety Report 9819256 (Version 2)
Quarter: 2013Q4

REPORT INFORMATION
  Report Type: Spontaneous
  Country: US (occurrence: None)
  Receive Date: 20131223
  Receipt Date: 20131223
  Transmission Date: 20140711
  Serious: Yes (Other)
  Sender: FDA-Public Use
  Company Number: 221121

PATIENT
  Age: 47 Year
  Sex: Female

DRUGS (1)
  1. PICATO (0.015 %, GEL) [Suspect]
     Indication: PRECANCEROUS SKIN LESION
     Dosage: FOR 3 DAYS TOPICAL
     Route: 061
     Dates: start: 20130331

REACTIONS (5)
  - Application site swelling [None]
  - Application site vesicles [None]
  - Application site discharge [None]
  - Application site pain [None]
  - Application site erythema [None]
